FAERS Safety Report 4778880-X (Version None)
Quarter: 2005Q3

REPORT INFORMATION
  Report Type: 
  Country: None (occurrence: None)
  Receive Date: 20050922
  Receipt Date: 20050909
  Transmission Date: 20060218
  Serious: Yes (Hospitalization)
  Sender: FDA-Public Use
  Company Number: 234209K05USA

PATIENT
  Age: 45 Year
  Sex: Female

DRUGS (1)
  1. REBIF [Suspect]
     Indication: MULTIPLE SCLEROSIS
     Dosage: 44 MCG
     Dates: start: 20040324, end: 20050401

REACTIONS (6)
  - CANDIDIASIS [None]
  - CHOLECYSTITIS [None]
  - HEADACHE [None]
  - LIVER FUNCTION TEST ABNORMAL [None]
  - STREPTOCOCCAL BACTERAEMIA [None]
  - VULVOVAGINAL MYCOTIC INFECTION [None]
